FAERS Safety Report 5806768-1 (Version None)
Quarter: 2008Q3

REPORT INFORMATION
  Report Type: 
  Country: None (occurrence: None)
  Receive Date: 20080709
  Receipt Date: 20080709
  Transmission Date: 20090109
  Serious: Yes (Hospitalization)
  Sender: FDA-Public Use
  Company Number: None

PATIENT
  Sex: Female
  Weight: 60 kg

DRUGS (1)
  1. CHLORHEXIDINE GLUCONATE [Suspect]
     Dosage: 15 ML BID PO
     Route: 048
     Dates: start: 20080701, end: 20080702

REACTIONS (4)
  - MUCOSAL ULCERATION [None]
  - OEDEMA [None]
  - PRURITUS [None]
  - SWOLLEN TONGUE [None]
